FAERS Safety Report 6030542-7 (Version None)
Quarter: 2009Q1

REPORT INFORMATION
  Report Type: 
  Country: None (occurrence: None)
  Receive Date: 20090106
  Receipt Date: 20090106
  Transmission Date: 20090719
  Serious: No
  Sender: FDA-Public Use
  Company Number: None

PATIENT
  Age: 39 Year
  Sex: Male
  Weight: 71.2147 kg

DRUGS (1)
  1. STRATTERA [Suspect]
     Indication: ATTENTION DEFICIT/HYPERACTIVITY DISORDER
     Dosage: POI ONCE DAILY PO
     Route: 048
     Dates: start: 20070407, end: 20070412

REACTIONS (4)
  - CRYING [None]
  - ELEVATED MOOD [None]
  - MOOD ALTERED [None]
  - PROSTATOMEGALY [None]
